FAERS Safety Report 13106141 (Version 6)
Quarter: 2017Q1

REPORT INFORMATION
  Report Type: Spontaneous
  Country: FR (occurrence: FR)
  Receive Date: 20170111
  Receipt Date: 20170331
  Transmission Date: 20170428
  Serious: Yes (Other)
  Sender: FDA-Public Use
  Company Number: FR-SA-2016SA235778

PATIENT
  Age: 28 Year
  Sex: Male

DRUGS (2)
  1. AUBAGIO [Suspect]
     Active Substance: TERIFLUNOMIDE
     Indication: MULTIPLE SCLEROSIS
     Route: 065
  2. AUBAGIO [Suspect]
     Active Substance: TERIFLUNOMIDE
     Indication: MULTIPLE SCLEROSIS
     Route: 065
     Dates: start: 20161221

REACTIONS (18)
  - Condition aggravated [Unknown]
  - Fatigue [Recovering/Resolving]
  - Tooth abscess [Unknown]
  - Uhthoff^s phenomenon [Unknown]
  - Respiratory tract congestion [Not Recovered/Not Resolved]
  - Abscess oral [Unknown]
  - Lymphocyte count decreased [Not Recovered/Not Resolved]
  - Hypersomnia [Unknown]
  - Nasopharyngitis [Not Recovered/Not Resolved]
  - Cough [Not Recovered/Not Resolved]
  - Aphthous ulcer [Unknown]
  - Depressed mood [Unknown]
  - Balance disorder [Unknown]
  - Fatigue [Unknown]
  - Visual impairment [Unknown]
  - Lymphocyte count increased [Unknown]
  - General physical health deterioration [Unknown]
  - Drug ineffective [Unknown]
